FAERS Safety Report 6749186-4 (Version None)
Quarter: 2010Q2

REPORT INFORMATION
  Report Type: 
  Country: None (occurrence: None)
  Receive Date: 20100601
  Receipt Date: 20100521
  Transmission Date: 20101027
  Serious: Yes (Death, Hospitalization, Other)
  Sender: FDA-Public Use
  Company Number: US-SANOFI-AVENTIS-2010SA029083

PATIENT
  Age: 86 Year
  Sex: Male

DRUGS (6)
  1. MULTAQ [Suspect]
     Indication: ATRIAL FIBRILLATION
     Route: 048
     Dates: start: 20100513, end: 20100518
  2. COUMADIN [Concomitant]
  3. LIPITOR [Concomitant]
  4. AMLODIPINE [Concomitant]
  5. LABETALOL HCL [Concomitant]
  6. HYZAAR [Concomitant]

REACTIONS (11)
  - BRAIN NATRIURETIC PEPTIDE INCREASED [None]
  - CARDIAC FAILURE [None]
  - DEATH [None]
  - DYSPNOEA [None]
  - EJECTION FRACTION DECREASED [None]
  - ELECTROCARDIOGRAM QT PROLONGED [None]
  - HEPATOCELLULAR INJURY [None]
  - HYPOTENSION [None]
  - INTERNATIONAL NORMALISED RATIO INCREASED [None]
  - PULMONARY CONGESTION [None]
  - VENTRICULAR TACHYCARDIA [None]
